FAERS Safety Report 15250690 (Version 1)
Quarter: 2018Q3

REPORT INFORMATION
  Report Type: Spontaneous
  Country: US (occurrence: US)
  Receive Date: 20180716
  Receipt Date: 20180716
  Transmission Date: 20181010
  Serious: No
  Sender: FDA-Public Use
  Company Number: None

PATIENT
  Age: 31 Year
  Sex: Female

DRUGS (1)
  1. MAVYRET [Suspect]
     Active Substance: GLECAPREVIR\PIBRENTASVIR
     Dates: start: 20180621, end: 20180715

REACTIONS (3)
  - Emotional disorder [None]
  - Headache [None]
  - Nausea [None]

NARRATIVE: CASE EVENT DATE: 20180612
